FAERS Safety Report 5518256-0 (Version None)
Quarter: 2007Q4

REPORT INFORMATION
  Report Type: 
  Country: None (occurrence: None)
  Receive Date: 20071115
  Receipt Date: 20071105
  Transmission Date: 20080405
  Serious: Yes (Life-Threatening)
  Sender: FDA-Public Use
  Company Number: B0484091A

PATIENT
  Age: 73 Year
  Sex: Female
  Weight: 83 kg

DRUGS (8)
  1. REQUIP [Suspect]
     Indication: PARKINSON'S DISEASE
     Dosage: 2MG THREE TIMES PER DAY
     Route: 048
     Dates: start: 20040526, end: 20070811
  2. SINEMET [Concomitant]
     Indication: PARKINSONISM
     Dosage: 125MG THREE TIMES PER DAY
     Route: 048
     Dates: start: 20060118
  3. BENZHEXOL [Concomitant]
     Indication: PARKINSONISM
     Dosage: 2MG FOUR TIMES PER DAY
     Route: 048
     Dates: start: 19940101
  4. ASPIRIN [Concomitant]
     Route: 048
     Dates: start: 19980101
  5. PREGABALIN [Concomitant]
     Dosage: 25MG TWICE PER DAY
  6. METHOCARBAMOL [Concomitant]
     Dosage: 75MG PER DAY
  7. UNKNOWN DRUG [Concomitant]
     Dosage: 60MG TWICE PER DAY
  8. WARFARIN SODIUM [Concomitant]

REACTIONS (2)
  - OEDEMA PERIPHERAL [None]
  - SKIN DISORDER [None]
